FAERS Safety Report 8546805-7 (Version None)
Quarter: 2012Q3

REPORT INFORMATION
  Report Type: 
  Country: None (occurrence: None)
  Receive Date: 20120727
  Receipt Date: 20120209
  Transmission Date: 20120928
  Serious: No
  Sender: FDA-Public Use
  Company Number: US-ASTRAZENECA-2012SE08911

PATIENT
  Age: 35 Year
  Sex: Female

DRUGS (2)
  1. DEPAKOTE [Suspect]
     Indication: MOOD ALTERED
     Route: 065
  2. SEROQUEL [Suspect]
     Route: 048

REACTIONS (10)
  - SLEEP DISORDER [None]
  - ANGER [None]
  - INCORRECT DOSE ADMINISTERED [None]
  - MOOD SWINGS [None]
  - CIRCUMSTANCE OR INFORMATION CAPABLE OF LEADING TO MEDICATION ERROR [None]
  - INSOMNIA [None]
  - ROAD TRAFFIC ACCIDENT [None]
  - MANIA [None]
  - DRUG DOSE OMISSION [None]
  - DEPRESSION [None]
